FAERS Safety Report 11274683 (Version 3)
Quarter: 2015Q3

REPORT INFORMATION
  Report Type: Spontaneous
  Country: JP (occurrence: JP)
  Receive Date: 20150715
  Receipt Date: 20150807
  Transmission Date: 20151125
  Serious: Yes (Hospitalization, Other)
  Sender: FDA-Public Use
  Company Number: JP-009507513-1507JPN004989

PATIENT
  Age: 49 Year
  Sex: Male

DRUGS (2)
  1. REFLEX [Suspect]
     Active Substance: MIRTAZAPINE
     Indication: DEPRESSION
     Dosage: 15 MG DAILY, DIVIDED DOSE FREQUENCY UNKNOWN
     Route: 048
  2. REFLEX [Suspect]
     Active Substance: MIRTAZAPINE
     Dosage: 15 MG DAILY, DIVIDED DOSE FREQUENCY UNKNOWN
     Route: 048

REACTIONS (4)
  - Self injurious behaviour [Recovering/Resolving]
  - Activation syndrome [Recovering/Resolving]
  - Suicidal ideation [Recovering/Resolving]
  - Irritability [Recovering/Resolving]
